FAERS Safety Report 8609771-1 (Version None)
Quarter: 2012Q3

REPORT INFORMATION
  Report Type: 
  Country: None (occurrence: None)
  Receive Date: 20120821
  Receipt Date: 20120814
  Transmission Date: 20120928
  Serious: Yes (Hospitalization)
  Sender: FDA-Public Use
  Company Number: CH-PFIZER INC-2012198082

PATIENT
  Age: 66 Year
  Sex: Male

DRUGS (8)
  1. GENOTROPIN [Suspect]
     Dosage: 0.6 MG, 1X/DAY
  2. ESCITALOPRAM [Concomitant]
     Indication: DEPRESSION
     Dosage: UNK
     Route: 048
  3. CEDUR - SLOW RELEASE [Concomitant]
     Indication: HYPERCHOLESTEROLAEMIA
     Dosage: UNK
     Route: 048
  4. ZOLPIDEM [Concomitant]
     Indication: INSOMNIA
     Dosage: UNK
     Route: 048
  5. ASPIRIN [Concomitant]
     Indication: CARDIAC DISORDER
     Dosage: UNK
     Route: 048
  6. LEVOTHYROXINE SODIUM [Concomitant]
     Indication: THYROID DISORDER
     Dosage: UNK
     Route: 048
  7. NEBIDO [Concomitant]
     Indication: HYPOGONADISM
     Dosage: UNK
     Route: 030
  8. HYDROCORTISONE [Concomitant]
     Indication: BLOOD CORTICOTROPHIN ABNORMAL
     Dosage: UNK
     Route: 048

REACTIONS (2)
  - PNEUMONIA [None]
  - CONFUSIONAL STATE [None]
